FAERS Safety Report 10195107 (Version 1)
Quarter: 2014Q2

REPORT INFORMATION
  Report Type: Spontaneous
  Country: CN (occurrence: CN)
  Receive Date: 20140526
  Receipt Date: 20140526
  Transmission Date: 20141212
  Serious: Yes (Other)
  Sender: FDA-Public Use
  Company Number: CN-009507513-1405CHN009645

PATIENT
  Age: 50 Year
  Sex: Male

DRUGS (3)
  1. COZAAR [Suspect]
     Indication: HYPERTENSION
     Dosage: 2 TABLETS EACH DAY, ONE IN THE MORNING, ONE AT NIGHT
     Route: 048
     Dates: start: 20140505, end: 20140510
  2. COZAAR [Suspect]
     Dosage: 2 TABLETS EACH DAY, ONE IN THE MORNING, ONE AT NIGHT
     Route: 048
     Dates: start: 20140505, end: 20140510
  3. COZAAR [Suspect]
     Dosage: 2 TABLETS EACH DAY, ONE IN THE MORNING, ONE AT NIGHT
     Route: 048
     Dates: start: 20140511

REACTIONS (2)
  - Hypertensive crisis [Recovered/Resolved]
  - Drug ineffective [Unknown]
